FAERS Safety Report 16774658 (Version 1)
Quarter: 2019Q3

REPORT INFORMATION
  Report Type: Report from Study
  Country: EG (occurrence: EG)
  Receive Date: 20190905
  Receipt Date: 20190905
  Transmission Date: 20191005
  Serious: Yes (Hospitalization)
  Sender: FDA-Public Use
  Company Number: EG-ROCHE-2397778

PATIENT
  Sex: Female
  Weight: 58 kg

DRUGS (2)
  1. TAMIFLU [Suspect]
     Active Substance: OSELTAMIVIR PHOSPHATE
     Indication: H1N1 INFLUENZA
     Dosage: ONCE
     Route: 030
     Dates: start: 201012, end: 201012
  2. TAMIFLU [Suspect]
     Active Substance: OSELTAMIVIR PHOSPHATE
     Indication: H1N1 INFLUENZA
     Dosage: 2 TABS FOR 5 DAYS
     Route: 048
     Dates: start: 201012, end: 201012

REACTIONS (1)
  - Fatigue [Recovered/Resolved]
